FAERS Safety Report 17351332 (Version 7)
Quarter: 2020Q1

REPORT INFORMATION
  Report Type: Report from Study
  Country: None (occurrence: US)
  Receive Date: 20200130
  Receipt Date: 20200315
  Transmission Date: 20200409
  Serious: Yes (Other)
  Sender: FDA-Public Use
  Company Number: US-ABBVIE-18K-163-2376249-00

PATIENT
  Age: 60 Year
  Sex: Female
  Weight: 97.61 kg

DRUGS (47)
  1. HUMIRA [Suspect]
     Active Substance: ADALIMUMAB
     Route: 058
     Dates: start: 20180911, end: 2018
  2. HUMIRA [Suspect]
     Active Substance: ADALIMUMAB
     Route: 058
     Dates: start: 2018
  3. TIZANIDINE. [Concomitant]
     Active Substance: TIZANIDINE
     Indication: ANAEMIA
  4. LOSARTAN. [Concomitant]
     Active Substance: LOSARTAN
     Indication: ANAEMIA
  5. VITAMIN D [Concomitant]
     Active Substance: VITAMIN D NOS
     Indication: PRODUCT USED FOR UNKNOWN INDICATION
  6. TRICIDINE [Concomitant]
     Indication: MUSCLE RELAXANT THERAPY
  7. PROMETHAZINE [Concomitant]
     Active Substance: PROMETHAZINE HYDROCHLORIDE
     Indication: NAUSEA
  8. ARIPIPRAZOLE. [Concomitant]
     Active Substance: ARIPIPRAZOLE
     Indication: SCHIZOPHRENIA
  9. PENNSAID [Concomitant]
     Active Substance: DICLOFENAC SODIUM
     Indication: PRODUCT USED FOR UNKNOWN INDICATION
  10. PREDNISONE. [Concomitant]
     Active Substance: PREDNISONE
     Indication: URTICARIA
  11. TRAZODONE [Concomitant]
     Active Substance: TRAZODONE HYDROCHLORIDE
     Indication: SLEEP APNOEA SYNDROME
  12. TROMETHAMINE. [Concomitant]
     Active Substance: TROMETHAMINE
     Indication: NAUSEA
  13. HUMIRA [Suspect]
     Active Substance: ADALIMUMAB
     Route: 058
  14. FAMOTIDINE. [Concomitant]
     Active Substance: FAMOTIDINE
     Indication: ULCER
  15. FAMOTIDINE. [Concomitant]
     Active Substance: FAMOTIDINE
     Indication: GASTROOESOPHAGEAL REFLUX DISEASE
  16. LOSARTAN. [Concomitant]
     Active Substance: LOSARTAN
     Indication: HYPERTENSION
  17. DICLOFENAC [Concomitant]
     Active Substance: DICLOFENAC
     Indication: PRODUCT USED FOR UNKNOWN INDICATION
  18. TRAZODONE [Concomitant]
     Active Substance: TRAZODONE HYDROCHLORIDE
     Indication: ANAEMIA
  19. HUMIRA [Suspect]
     Active Substance: ADALIMUMAB
     Route: 058
  20. HUMIRA [Suspect]
     Active Substance: ADALIMUMAB
     Indication: RHEUMATOID ARTHRITIS
     Route: 058
  21. TIZANIDINE. [Concomitant]
     Active Substance: TIZANIDINE
     Indication: MUSCLE RELAXANT THERAPY
  22. FERROUS SULFATE. [Concomitant]
     Active Substance: FERROUS SULFATE
     Indication: ULCER
  23. FERROUS SULFATE. [Concomitant]
     Active Substance: FERROUS SULFATE
     Indication: ANAEMIA
  24. ATORVASTATIN [Concomitant]
     Active Substance: ATORVASTATIN
     Indication: BLOOD CHOLESTEROL INCREASED
  25. HYDROCODONE [Concomitant]
     Active Substance: HYDROCODONE
     Indication: PAIN
  26. TERCONAZOLE. [Concomitant]
     Active Substance: TERCONAZOLE
     Indication: PRODUCT USED FOR UNKNOWN INDICATION
  27. OLOPATADINE. [Concomitant]
     Active Substance: OLOPATADINE
     Indication: PRODUCT USED FOR UNKNOWN INDICATION
  28. VITAMIN B2 [Concomitant]
     Active Substance: RIBOFLAVIN
     Indication: VITAMIN SUPPLEMENTATION
  29. HUMIRA [Suspect]
     Active Substance: ADALIMUMAB
     Indication: RHEUMATOID ARTHRITIS
     Route: 058
     Dates: start: 2013
  30. SERTRALINE [Concomitant]
     Active Substance: SERTRALINE HYDROCHLORIDE
     Indication: ANAEMIA
  31. TRAMADOL. [Concomitant]
     Active Substance: TRAMADOL
     Indication: PAIN
  32. ZYRTEC [Concomitant]
     Active Substance: CETIRIZINE HYDROCHLORIDE
     Indication: ALLERGIC SINUSITIS
  33. OXYBUTYNIN. [Concomitant]
     Active Substance: OXYBUTYNIN CHLORIDE
     Indication: URINARY INCONTINENCE
  34. TRAZODONE [Concomitant]
     Active Substance: TRAZODONE HYDROCHLORIDE
     Indication: INSOMNIA
  35. HUMIRA [Suspect]
     Active Substance: ADALIMUMAB
     Route: 058
     Dates: start: 2014, end: 20180828
  36. HUMIRA [Suspect]
     Active Substance: ADALIMUMAB
     Route: 058
  37. HUMIRA [Suspect]
     Active Substance: ADALIMUMAB
     Route: 058
  38. FERROUS SULFATE. [Concomitant]
     Active Substance: FERROUS SULFATE
     Indication: MINERAL SUPPLEMENTATION
  39. NYSTATIN. [Concomitant]
     Active Substance: NYSTATIN
     Indication: PRODUCT USED FOR UNKNOWN INDICATION
  40. TUSSIN [Concomitant]
     Active Substance: GUAIFENESIN
     Indication: PRODUCT USED FOR UNKNOWN INDICATION
  41. OXYBUTYNIN. [Concomitant]
     Active Substance: OXYBUTYNIN CHLORIDE
     Indication: ANAEMIA
  42. VITAMIN D2 [Concomitant]
     Active Substance: ERGOCALCIFEROL
     Indication: CALCIUM DEFICIENCY
  43. CALCIUM [Concomitant]
     Active Substance: CALCIUM
     Indication: PRODUCT USED FOR UNKNOWN INDICATION
  44. TIZANIDINE. [Concomitant]
     Active Substance: TIZANIDINE
     Indication: INSOMNIA
  45. SERTRALINE [Concomitant]
     Active Substance: SERTRALINE HYDROCHLORIDE
     Indication: SCHIZOPHRENIA
  46. BLINK TEARS [Concomitant]
     Active Substance: POLYETHYLENE GLYCOL 400
     Indication: PRODUCT USED FOR UNKNOWN INDICATION
  47. MULTIVITAMIN [Concomitant]
     Active Substance: VITAMINS
     Indication: VITAMIN SUPPLEMENTATION

REACTIONS (54)
  - Wrong technique in device usage process [Unknown]
  - Hyperhidrosis [Not Recovered/Not Resolved]
  - Hot flush [Not Recovered/Not Resolved]
  - Injection site pain [Unknown]
  - Musculoskeletal pain [Unknown]
  - Rash [Recovering/Resolving]
  - Fall [Unknown]
  - Cyst [Recovered/Resolved]
  - Bronchitis [Recovered/Resolved]
  - Ear infection [Recovered/Resolved]
  - Eye pruritus [Not Recovered/Not Resolved]
  - Eye allergy [Unknown]
  - Nasopharyngitis [Recovering/Resolving]
  - Drug ineffective [Unknown]
  - Hypersensitivity [Not Recovered/Not Resolved]
  - Nasopharyngitis [Recovered/Resolved]
  - Rash [Recovered/Resolved]
  - Allergic cough [Not Recovered/Not Resolved]
  - Nausea [Recovered/Resolved]
  - Diarrhoea [Recovered/Resolved]
  - Oropharyngeal pain [Not Recovered/Not Resolved]
  - Dysphonia [Unknown]
  - Joint swelling [Unknown]
  - Dysphonia [Recovered/Resolved]
  - Ocular hyperaemia [Unknown]
  - Sinus congestion [Not Recovered/Not Resolved]
  - Arthralgia [Not Recovered/Not Resolved]
  - Abdominal pain upper [Recovered/Resolved with Sequelae]
  - Dry eye [Recovered/Resolved]
  - Eye infection [Recovered/Resolved]
  - Scab [Not Recovered/Not Resolved]
  - Ear pruritus [Not Recovered/Not Resolved]
  - Arthritis [Not Recovered/Not Resolved]
  - Headache [Not Recovered/Not Resolved]
  - Abdominal pain upper [Recovering/Resolving]
  - Infection [Unknown]
  - Sinusitis [Not Recovered/Not Resolved]
  - Rheumatoid arthritis [Recovered/Resolved]
  - Pain [Not Recovered/Not Resolved]
  - Bronchitis [Not Recovered/Not Resolved]
  - Intervertebral disc protrusion [Recovered/Resolved]
  - Ocular hyperaemia [Not Recovered/Not Resolved]
  - Arthralgia [Unknown]
  - Pain in extremity [Unknown]
  - Nasopharyngitis [Not Recovered/Not Resolved]
  - Eye pruritus [Recovered/Resolved]
  - Skin irritation [Unknown]
  - Hot flush [Not Recovered/Not Resolved]
  - Bronchitis chronic [Unknown]
  - Hyperhidrosis [Not Recovered/Not Resolved]
  - Peripheral swelling [Not Recovered/Not Resolved]
  - Pain in extremity [Not Recovered/Not Resolved]
  - Back pain [Not Recovered/Not Resolved]
  - Musculoskeletal pain [Not Recovered/Not Resolved]

NARRATIVE: CASE EVENT DATE: 2013
